FAERS Safety Report 4403831-7 (Version None)
Quarter: 2004Q3

REPORT INFORMATION
  Report Type: 
  Country: None (occurrence: None)
  Receive Date: 20040719
  Receipt Date: 20040708
  Transmission Date: 20050211
  Serious: Yes (Hospitalization)
  Sender: FDA-Public Use
  Company Number: 2004046506

PATIENT
  Age: 31 Year
  Sex: Male

DRUGS (8)
  1. ZITHROMAX [Suspect]
     Indication: ILL-DEFINED DISORDER
     Dosage: ORAL
     Route: 048
     Dates: start: 20030920, end: 20030920
  2. PROPRANOLOL [Suspect]
     Indication: ILL-DEFINED DISORDER
     Dosage: 40 MG, ORAL
     Route: 048
     Dates: start: 20030920, end: 20030920
  3. ETHANOL (ETHANOL) [Suspect]
     Indication: ILL-DEFINED DISORDER
     Dates: start: 20030920, end: 20030920
  4. COCAINE (COCAINE) [Suspect]
     Indication: ILL-DEFINED DISORDER
     Dates: start: 20030920, end: 20030920
  5. ABACAVIR SULFATE (ABACAVIR SULFATE) [Concomitant]
  6. DIDANOSINE (DIDANOSINE) [Concomitant]
  7. KALETRA [Concomitant]
  8. ALL OTHER THERAPEUTIC PRODUCTS [Suspect]
     Dates: start: 20030920, end: 20030920

REACTIONS (11)
  - ALANINE AMINOTRANSFERASE ABNORMAL [None]
  - ALCOHOL USE [None]
  - ASPARTATE AMINOTRANSFERASE ABNORMAL [None]
  - DRUG ABUSER [None]
  - FACTOR V DEFICIENCY [None]
  - HEPATIC FUNCTION ABNORMAL [None]
  - NAUSEA [None]
  - OVERDOSE [None]
  - PROTHROMBIN TIME PROLONGED [None]
  - RENAL FAILURE [None]
  - SUICIDE ATTEMPT [None]
